FAERS Safety Report 14685702 (Version 3)
Quarter: 2018Q2

REPORT INFORMATION
  Report Type: Spontaneous
  Country: US (occurrence: US)
  Receive Date: 20180327
  Receipt Date: 20180417
  Transmission Date: 20180711
  Serious: Yes (Other)
  Sender: FDA-Public Use
  Company Number: US-PFIZER INC-2018120682

PATIENT
  Age: 43 Year
  Sex: Female

DRUGS (1)
  1. XELJANZ XR [Suspect]
     Active Substance: TOFACITINIB CITRATE
     Dosage: 11 MG, UNK (NOT EVERY DAY)

REACTIONS (9)
  - Product use issue [Unknown]
  - Condition aggravated [Not Recovered/Not Resolved]
  - Red blood cell sedimentation rate increased [Unknown]
  - Inflammation [Unknown]
  - Dry eye [Unknown]
  - Arthralgia [Unknown]
  - Depression [Unknown]
  - Dry mouth [Unknown]
  - Sjogren^s syndrome [Unknown]
